FAERS Safety Report 20892362 (Version 4)
Quarter: 2022Q3

REPORT INFORMATION
  Report Type: Report from Study
  Country: US (occurrence: US)
  Receive Date: 20220530
  Receipt Date: 20220810
  Transmission Date: 20221027
  Serious: Yes (Other)
  Sender: FDA-Public Use
  Company Number: US-BRISTOL-MYERS SQUIBB COMPANY-2022-014901

PATIENT
  Age: 64 Year
  Sex: Male
  Weight: 81.6 kg

DRUGS (4)
  1. REVLIMID [Suspect]
     Active Substance: LENALIDOMIDE
     Indication: Follicular lymphoma
     Route: 048
     Dates: start: 20220312
  2. REVLIMID [Suspect]
     Active Substance: LENALIDOMIDE
     Dosage: 21 OUT OF 28 DAYS 21 DAYS ON, 7 DAYS OFF.  EXPIRY DATE: 30-SEP-2024.
     Route: 048
     Dates: start: 20200312
  3. REVLIMID [Suspect]
     Active Substance: LENALIDOMIDE
     Route: 065
     Dates: start: 20200312
  4. OCTAGAM IMMUNE GLOBULIN (HUMAN) [Concomitant]
     Active Substance: HUMAN IMMUNOGLOBULIN G
     Indication: Product used for unknown indication

REACTIONS (5)
  - Respiratory tract infection viral [Unknown]
  - Cough [Unknown]
  - Dysphonia [Recovering/Resolving]
  - Diarrhoea [Unknown]
  - Intentional product use issue [Unknown]
